FAERS Safety Report 24430929 (Version 4)
Quarter: 2025Q3

REPORT INFORMATION
  Report Type: Spontaneous
  Country: EU (occurrence: EU)
  Receive Date: 20241014
  Receipt Date: 20250909
  Transmission Date: 20251020
  Serious: Yes (Hospitalization)
  Sender: ABBVIE
  Company Number: EU-ABBVIE-5891439

PATIENT
  Age: 24 Year
  Sex: Female
  Weight: 85 kg

DRUGS (3)
  1. RINVOQ [Suspect]
     Active Substance: UPADACITINIB
     Indication: Crohn^s disease
     Route: 048
     Dates: start: 20240109, end: 20240424
  2. PENTASA [Concomitant]
     Active Substance: MESALAMINE
     Indication: Colitis ulcerative
     Route: 054
     Dates: start: 20240206
  3. LEVOTHYROXINE SODIUM [Concomitant]
     Active Substance: LEVOTHYROXINE SODIUM
     Indication: Hypothyroidism
     Route: 048
     Dates: start: 2020

REACTIONS (4)
  - Cervical incompetence [Unknown]
  - Live birth [Unknown]
  - Maternal exposure during pregnancy [Unknown]
  - Premature rupture of membranes [Unknown]

NARRATIVE: CASE EVENT DATE: 20240808
